FAERS Safety Report 5902641-9 (Version None)
Quarter: 2008Q3

REPORT INFORMATION
  Report Type: 
  Country: None (occurrence: None)
  Receive Date: 20080926
  Receipt Date: 20080912
  Transmission Date: 20090109
  Serious: No
  Sender: FDA-Public Use
  Company Number: SPV1-2008-01844

PATIENT
  Age: 73 Year
  Sex: Female
  Weight: 82.5 kg

DRUGS (3)
  1. LIALDA [Suspect]
     Indication: CROHN'S DISEASE
     Dosage: 3.6 G, 1X/DAY:QD, ORAL
     Route: 048
     Dates: start: 20080526, end: 20080605
  2. HYZAAR [Concomitant]
  3. TOPROL-XL [Concomitant]

REACTIONS (8)
  - ABDOMINAL PAIN [None]
  - DIARRHOEA [None]
  - EATING DISORDER [None]
  - GAIT DISTURBANCE [None]
  - HAEMATOCHEZIA [None]
  - MALAISE [None]
  - OFF LABEL USE [None]
  - SPEECH DISORDER [None]
